FAERS Safety Report 9154989 (Version 1)
Quarter: 2013Q1

REPORT INFORMATION
  Report Type: Spontaneous
  Country: US (occurrence: None)
  Receive Date: 20130307
  Receipt Date: 20130307
  Transmission Date: 20140127
  Serious: Yes (Other)
  Sender: FDA-Public Use
  Company Number: None

PATIENT
  Age: 10 Year
  Sex: Male
  Weight: 39 kg

DRUGS (2)
  1. DILANTIN [Suspect]
     Indication: CONVULSION
     Dosage: 1.5 TID GT
     Route: 048
     Dates: start: 20100122
  2. DILANTIN [Suspect]
     Indication: METABOLIC DISORDER
     Dosage: 1.5 TID GT
     Route: 048
     Dates: start: 20100122

REACTIONS (2)
  - Product solubility abnormal [None]
  - Product physical issue [None]
